FAERS Safety Report 4828168-3 (Version None)
Quarter: 2005Q4

REPORT INFORMATION
  Report Type: 
  Country: None (occurrence: None)
  Receive Date: 20051115
  Receipt Date: 20050929
  Transmission Date: 20060501
  Serious: Yes (Death, Hospitalization)
  Sender: FDA-Public Use
  Company Number: EWC031036734

PATIENT
  Age: 54 Year
  Sex: Female
  Weight: 99.1 kg

DRUGS (9)
  1. NAVELBINE [Suspect]
     Indication: NON-SMALL CELL LUNG CANCER
     Dosage: 50MG UNKNOWN
     Route: 042
     Dates: start: 20030506, end: 20030716
  2. GEMZAR [Suspect]
     Indication: NON-SMALL CELL LUNG CANCER
     Dosage: 2100MG UNKNOWN
     Route: 042
     Dates: start: 20030506, end: 20030716
  3. EUTHYROX [Concomitant]
     Route: 065
  4. ACECOMB [Concomitant]
     Route: 065
  5. ACEMIN [Concomitant]
     Route: 065
  6. NORVASC [Concomitant]
     Indication: HYPERTENSION
     Route: 065
  7. BERODUAL [Concomitant]
     Indication: ASTHMA
     Route: 065
  8. FLUCTINE [Concomitant]
     Indication: DEPRESSION
     Route: 065
  9. PARACODIN BITARTRATE TAB [Concomitant]
     Route: 065

REACTIONS (9)
  - ARTERIAL OCCLUSIVE DISEASE [None]
  - DEATH [None]
  - HAEMOPTYSIS [None]
  - NEOPLASM MALIGNANT [None]
  - PAIN IN EXTREMITY [None]
  - PNEUMONITIS [None]
  - RECTAL HAEMORRHAGE [None]
  - RESPIRATORY FAILURE [None]
  - THROMBOSIS [None]
